FAERS Safety Report 20335274 (Version 1)
Quarter: 2022Q1

REPORT INFORMATION
  Report Type: Other
  Country: US (occurrence: US)
  Receive Date: 20220114
  Receipt Date: 20220114
  Transmission Date: 20220424
  Serious: Yes (Hospitalization)
  Sender: FDA-Public Use
  Company Number: US-HLS-202200031

PATIENT
  Age: 14 Year
  Sex: Female

DRUGS (2)
  1. CLOZAPINE [Suspect]
     Active Substance: CLOZAPINE
     Indication: Schizophrenia
     Dosage: AT BEDTIME, AND GRADUALLY TITRATED UP TO 300 MG AT BEDTIME (QHS).
     Route: 065
  2. ACETYLCYSTEINE [Concomitant]
     Active Substance: ACETYLCYSTEINE
     Indication: Product used for unknown indication
     Dosage: GRADUALLY TITRATED UP TO 600 MG THREE TIMES A DAY
     Route: 048

REACTIONS (7)
  - Antipsychotic drug level increased [Recovered/Resolved]
  - Glycosylated haemoglobin increased [Recovered/Resolved]
  - Menstruation irregular [Recovered/Resolved]
  - Leukocytosis [Recovered/Resolved]
  - Sedation complication [Recovered/Resolved]
  - Salivary hypersecretion [Recovered/Resolved]
  - Weight increased [Recovered/Resolved]
